FAERS Safety Report 22649848 (Version 12)
Quarter: 2025Q4

REPORT INFORMATION
  Report Type: Report from Study
  Country: US (occurrence: US)
  Receive Date: 20230628
  Receipt Date: 20251023
  Transmission Date: 20260118
  Serious: Yes (Hospitalization, Other)
  Sender: TAKEDA
  Company Number: US-TAKEDA-2022TUS004275

PATIENT
  Age: 78 Year
  Sex: Female
  Weight: 59 kg

DRUGS (46)
  1. HUMAN IMMUNOGLOBULIN G [Suspect]
     Active Substance: HUMAN IMMUNOGLOBULIN G
     Indication: IgG deficiency
     Dosage: 35 GRAM, Q4WEEKS
     Dates: start: 20190703
  2. HUMAN IMMUNOGLOBULIN G [Suspect]
     Active Substance: HUMAN IMMUNOGLOBULIN G
     Indication: Immunodeficiency
     Dosage: 30 GRAM, Q4WEEKS
  3. HUMAN IMMUNOGLOBULIN G [Suspect]
     Active Substance: HUMAN IMMUNOGLOBULIN G
     Indication: Primary immunodeficiency syndrome
     Dosage: 35 GRAM, Q4WEEKS
  4. EPINEPHRINE [Concomitant]
     Active Substance: EPINEPHRINE
     Dosage: UNK
  5. ACETAMINOPHEN [Concomitant]
     Active Substance: ACETAMINOPHEN
     Indication: Product used for unknown indication
     Dosage: UNK
  6. Omega [Concomitant]
     Dosage: UNK
  7. FLUBLOK QUADRIVALENT NOS [Concomitant]
     Active Substance: INFLUENZA VIRUS VACCINE
     Indication: Product used for unknown indication
     Dosage: UNK
  8. LIPITOR [Concomitant]
     Active Substance: ATORVASTATIN CALCIUM
     Indication: Product used for unknown indication
     Dosage: UNK
  9. SINGULAIR [Concomitant]
     Active Substance: MONTELUKAST SODIUM
     Indication: Product used for unknown indication
     Dosage: UNK
  10. BROVANA [Concomitant]
     Active Substance: ARFORMOTEROL TARTRATE
     Indication: Product used for unknown indication
     Dosage: UNK
  11. SODIUM CHLORIDE [Concomitant]
     Active Substance: SODIUM CHLORIDE
     Indication: Product used for unknown indication
     Dosage: UNK
  12. Coq [Concomitant]
     Dosage: UNK
  13. LEVALBUTEROL HYDROCHLORIDE [Concomitant]
     Active Substance: LEVALBUTEROL HYDROCHLORIDE
     Dosage: UNK
  14. HYDROXYCHLOROQUINE SULFATE [Concomitant]
     Active Substance: HYDROXYCHLOROQUINE SULFATE
     Dosage: UNK
  15. PULMICORT TURBUHALER [Concomitant]
     Active Substance: BUDESONIDE
     Dosage: UNK
  16. LEVALBUTEROL TARTRATE [Concomitant]
     Active Substance: LEVALBUTEROL TARTRATE
     Dosage: UNK
  17. FIBER THERAPY (CALCIUM POLYCARBOPHIL) [Concomitant]
     Active Substance: CALCIUM POLYCARBOPHIL
     Dosage: UNK
  18. ACIPHEX [Concomitant]
     Active Substance: RABEPRAZOLE SODIUM
     Dosage: UNK
  19. METOPROLOL SUCCINATE [Concomitant]
     Active Substance: METOPROLOL SUCCINATE
     Dosage: UNK
  20. LEVSIN [Concomitant]
     Active Substance: HYOSCYAMINE SULFATE
     Dosage: UNK
  21. ZINC [Concomitant]
     Active Substance: ZINC
     Dosage: UNK
  22. SPIRIVA RESPIMAT [Concomitant]
     Active Substance: TIOTROPIUM BROMIDE
     Indication: Product used for unknown indication
     Dosage: UNK
  23. LATANOPROST [Concomitant]
     Active Substance: LATANOPROST
     Dosage: UNK
  24. DIPHENHYDRAMINE HYDROCHLORIDE [Concomitant]
     Active Substance: DIPHENHYDRAMINE HYDROCHLORIDE
     Dosage: UNK
  25. LUNESTA [Concomitant]
     Active Substance: ESZOPICLONE
     Indication: Product used for unknown indication
     Dosage: UNK
  26. GABAPENTIN [Concomitant]
     Active Substance: GABAPENTIN
     Dosage: UNK
  27. MODERNA COVID-19 VACCINE [Concomitant]
     Active Substance: ELASOMERAN
     Indication: Product used for unknown indication
     Dosage: UNK
  28. HYOSCYAMINE SULFATE [Concomitant]
     Active Substance: HYOSCYAMINE SULFATE
     Dosage: UNK
  29. YUPELRI [Concomitant]
     Active Substance: REVEFENACIN
     Dosage: UNK
  30. TYLENOL EXTRA STRENGTH [Concomitant]
     Active Substance: ACETAMINOPHEN
     Dosage: UNK
  31. SOLU-MEDROL [Concomitant]
     Active Substance: METHYLPREDNISOLONE SODIUM SUCCINATE
     Indication: Product used for unknown indication
     Dosage: UNK
  32. SODIUM CHLORIDE [Concomitant]
     Active Substance: SODIUM CHLORIDE
     Indication: Product used for unknown indication
     Dosage: UNK
  33. GLUCOSAMINE [Concomitant]
     Active Substance: GLUCOSAMINE
     Dosage: UNK
  34. VITAMIN D3 [Concomitant]
     Active Substance: CHOLECALCIFEROL
     Dosage: UNK
  35. DIPHENHYDRAMINE [Concomitant]
     Active Substance: DIPHENHYDRAMINE
     Dosage: UNK
  36. ACETYLCYSTEINE [Concomitant]
     Active Substance: ACETYLCYSTEINE
     Indication: Product used for unknown indication
     Dosage: UNK
  37. GLUCOSAMINE [Concomitant]
     Active Substance: GLUCOSAMINE
     Indication: Product used for unknown indication
     Dosage: UNK
  38. Trinity [Concomitant]
     Dosage: UNK
  39. GOLD [Concomitant]
     Active Substance: GOLD
     Dosage: UNK
  40. BENADRYL [Concomitant]
     Active Substance: DIPHENHYDRAMINE HYDROCHLORIDE
     Dosage: UNK
  41. METOPROLOL [Concomitant]
     Active Substance: METOPROLOL
     Dosage: UNK
  42. ALBUTEROL [Concomitant]
     Active Substance: ALBUTEROL
     Dosage: UNK
  43. ELIQUIS [Concomitant]
     Active Substance: APIXABAN
     Dosage: UNK
  44. PROLIA [Concomitant]
     Active Substance: DENOSUMAB
     Dosage: UNK
  45. OXYGEN [Concomitant]
     Active Substance: OXYGEN
     Dosage: UNK
  46. BENZONATATE [Concomitant]
     Active Substance: BENZONATATE
     Dosage: UNK

REACTIONS (23)
  - Breast cancer [Unknown]
  - Road traffic accident [Unknown]
  - Thermal burn [Recovering/Resolving]
  - Atrial fibrillation [Recovered/Resolved]
  - Pseudomonas infection [Unknown]
  - Pneumonia [Unknown]
  - Staphylococcal bacteraemia [Unknown]
  - COVID-19 [Recovered/Resolved]
  - Musculoskeletal discomfort [Recovered/Resolved]
  - Infusion related reaction [Recovered/Resolved]
  - Nasopharyngitis [Unknown]
  - Product supply issue [Unknown]
  - Bronchitis [Recovering/Resolving]
  - Upper respiratory tract infection [Unknown]
  - Musculoskeletal stiffness [Unknown]
  - Influenza [Unknown]
  - Asthma [Unknown]
  - Wheezing [Recovered/Resolved]
  - Tachycardia [Unknown]
  - Cough [Unknown]
  - Dyspnoea [Unknown]
  - Diarrhoea [Unknown]
  - Headache [Recovered/Resolved]

NARRATIVE: CASE EVENT DATE: 20220113
